FAERS Safety Report 18817191 (Version 18)
Quarter: 2025Q1

REPORT INFORMATION
  Report Type: Report from Study
  Country: US (occurrence: US)
  Receive Date: 20210201
  Receipt Date: 20250305
  Transmission Date: 20250409
  Serious: Yes (Hospitalization, Other)
  Sender: TAKEDA
  Company Number: US-TAKEDA-US202034194

PATIENT
  Age: 30 Year
  Sex: Male
  Weight: 98 kg

DRUGS (27)
  1. HUMAN IMMUNOGLOBULIN G [Suspect]
     Active Substance: HUMAN IMMUNOGLOBULIN G
     Indication: Congenital hypogammaglobulinaemia
     Dosage: 40 GRAM, Q3WEEKS
     Dates: start: 19990922
  2. HUMAN IMMUNOGLOBULIN G [Suspect]
     Active Substance: HUMAN IMMUNOGLOBULIN G
     Dosage: 40 GRAM, Q3WEEKS
     Dates: start: 19991118
  3. HUMAN IMMUNOGLOBULIN G [Suspect]
     Active Substance: HUMAN IMMUNOGLOBULIN G
     Dosage: 40 GRAM, Q3WEEKS
     Dates: start: 20111215
  4. HUMAN IMMUNOGLOBULIN G [Suspect]
     Active Substance: HUMAN IMMUNOGLOBULIN G
     Dosage: 40 GRAM, Q3WEEKS
     Dates: start: 20160722
  5. HUMAN IMMUNOGLOBULIN G [Suspect]
     Active Substance: HUMAN IMMUNOGLOBULIN G
     Dosage: 40 GRAM, Q3WEEKS
     Dates: start: 20161014
  6. HUMAN IMMUNOGLOBULIN G [Suspect]
     Active Substance: HUMAN IMMUNOGLOBULIN G
     Dosage: 40 GRAM, Q3WEEKS
  7. EPINEPHRINE [Concomitant]
     Active Substance: EPINEPHRINE
  8. HEPARIN [Concomitant]
     Active Substance: HEPARIN SODIUM
  9. SODIUM CHLORIDE [Concomitant]
     Active Substance: SODIUM CHLORIDE
  10. ACETAMINOPHEN [Concomitant]
     Active Substance: ACETAMINOPHEN
  11. AMOXICILLIN\CLAVULANATE POTASSIUM [Concomitant]
     Active Substance: AMOXICILLIN\CLAVULANATE POTASSIUM
  12. LIDOCAINE\PRILOCAINE [Concomitant]
     Active Substance: LIDOCAINE\PRILOCAINE
  13. LIDOCAINE [Concomitant]
     Active Substance: LIDOCAINE
  14. DIPHENHYDRAMINE [Concomitant]
     Active Substance: DIPHENHYDRAMINE
  15. MELOXICAM [Concomitant]
     Active Substance: MELOXICAM
  16. BROMFED [Concomitant]
     Active Substance: BROMPHENIRAMINE MALEATE\DEXTROMETHORPHAN HYDROBROMIDE\PSEUDOEPHEDRINE HYDROCHLORIDE
  17. IBUPROFEN [Concomitant]
     Active Substance: IBUPROFEN
  18. OMEPRAZOLE [Concomitant]
     Active Substance: OMEPRAZOLE
  19. ZINC SULFATE [Concomitant]
     Active Substance: ZINC SULFATE
  20. PRILOCAINE [Concomitant]
     Active Substance: PRILOCAINE
  21. VITAMIN D3 [Concomitant]
     Active Substance: CHOLECALCIFEROL
  22. VITAMIN C [Concomitant]
     Active Substance: ASCORBIC ACID
  23. GABAPENTIN [Concomitant]
     Active Substance: GABAPENTIN
  24. METHOCARBAMOL [Concomitant]
     Active Substance: METHOCARBAMOL
  25. COLACE [Concomitant]
     Active Substance: DOCUSATE SODIUM
  26. DIPHENHYDRAMINE HYDROCHLORIDE [Concomitant]
     Active Substance: DIPHENHYDRAMINE HYDROCHLORIDE
  27. ASCORBIC ACID [Concomitant]
     Active Substance: ASCORBIC ACID

REACTIONS (25)
  - COVID-19 pneumonia [Unknown]
  - Procedural pain [Unknown]
  - Injury [Unknown]
  - Nasopharyngitis [Not Recovered/Not Resolved]
  - Accident at work [Unknown]
  - Neuralgia [Unknown]
  - Viral upper respiratory tract infection [Unknown]
  - COVID-19 [Recovered/Resolved]
  - Pharyngitis [Unknown]
  - Productive cough [Unknown]
  - Respiratory tract infection [Unknown]
  - Ear infection [Unknown]
  - Ligament sprain [Unknown]
  - Muscle strain [Unknown]
  - Sinusitis [Unknown]
  - Musculoskeletal stiffness [Unknown]
  - Heart rate increased [Unknown]
  - Influenza [Unknown]
  - Pain [Unknown]
  - Rhinorrhoea [Unknown]
  - Blood pressure increased [Unknown]
  - Diarrhoea [Not Recovered/Not Resolved]
  - Rash [Unknown]
  - Back pain [Unknown]
  - Fatigue [Unknown]

NARRATIVE: CASE EVENT DATE: 20210103
